FAERS Safety Report 8567614-9 (Version None)
Quarter: 2012Q3

REPORT INFORMATION
  Report Type: 
  Country: None (occurrence: None)
  Receive Date: 20120803
  Receipt Date: 20120729
  Transmission Date: 20120928
  Serious: Yes (Hospitalization, Other)
  Sender: FDA-Public Use
  Company Number: CA-ELI_LILLY_AND_COMPANY-CA201207009015

PATIENT
  Age: 83 Year
  Sex: Female
  Weight: 103 kg

DRUGS (12)
  1. RYTHMOL [Concomitant]
  2. VITAMIN D [Concomitant]
  3. IRON [Concomitant]
  4. BISOPROLOL FUMARATE [Concomitant]
  5. CALCIUM [Concomitant]
  6. CATAPRES                                /UNK/ [Concomitant]
  7. AMLODIPINE [Concomitant]
  8. TYLENOL                                 /SCH/ [Concomitant]
     Dosage: UNK, PRN
  9. AVAPRO [Concomitant]
  10. MACROBID [Concomitant]
     Dosage: UNK, PRN
  11. FORTEO [Suspect]
     Indication: OSTEOPOROSIS
     Dosage: 20 UG, UNK
     Route: 058
     Dates: start: 20120306, end: 20120628
  12. VITAMIN B-12 [Concomitant]

REACTIONS (7)
  - NAUSEA [None]
  - VIRAL INFECTION [None]
  - NASOPHARYNGITIS [None]
  - MALAISE [None]
  - WEIGHT DECREASED [None]
  - ASTHENIA [None]
  - COUGH [None]
